FAERS Safety Report 24341454 (Version 1)
Quarter: 2024Q3

REPORT INFORMATION
  Report Type: Spontaneous
  Country: US (occurrence: US)
  Receive Date: 20240920
  Receipt Date: 20240920
  Transmission Date: 20241016
  Serious: No
  Sender: CHATTEM
  Company Number: US-OPELLA-2024OHG032255

PATIENT

DRUGS (1)
  1. ALLEGRA ALLERGY [Suspect]
     Active Substance: FEXOFENADINE HYDROCHLORIDE
     Indication: Product used for unknown indication

REACTIONS (6)
  - Throat irritation [Unknown]
  - Ear pruritus [Unknown]
  - Eye pruritus [Unknown]
  - Sneezing [Unknown]
  - Feeling abnormal [Unknown]
  - Therapeutic response shortened [Unknown]
